FAERS Safety Report 5119763-5 (Version None)
Quarter: 2006Q4

REPORT INFORMATION
  Report Type: 
  Country: None (occurrence: None)
  Receive Date: 20061003
  Receipt Date: 20051221
  Transmission Date: 20070319
  Serious: Yes (Death, Hospitalization)
  Sender: FDA-Public Use
  Company Number: PHBS2005JP18806

PATIENT
  Age: 64 Year
  Sex: Female

DRUGS (4)
  1. GLEEVEC [Suspect]
     Indication: GASTROINTESTINAL STROMAL TUMOUR
     Dosage: 400 MG/DAY
     Route: 065
     Dates: start: 20040819, end: 20040901
  2. GLEEVEC [Suspect]
     Dosage: 300 MG/DAY
     Route: 065
     Dates: start: 20041001, end: 20041101
  3. GLEEVEC [Suspect]
     Dosage: 200 MG/DAY
     Route: 048
     Dates: start: 20041101, end: 20050525
  4. GLEEVEC [Suspect]
     Dosage: 400 MG/DAY
     Dates: start: 20050526

REACTIONS (11)
  - ABDOMINAL PAIN [None]
  - ANAEMIA [None]
  - ASCITES [None]
  - FACE OEDEMA [None]
  - HAEMORRHAGIC ASCITES [None]
  - MALIGNANT NEOPLASM PROGRESSION [None]
  - PERITONEAL HAEMORRHAGE [None]
  - PLEURAL EFFUSION [None]
  - TUMOUR PERFORATION [None]
  - VOMITING [None]
  - WHITE BLOOD CELL COUNT DECREASED [None]
